FAERS Safety Report 6137355-6 (Version None)
Quarter: 2009Q1

REPORT INFORMATION
  Report Type: 
  Country: None (occurrence: None)
  Receive Date: 20090330
  Receipt Date: 20090320
  Transmission Date: 20090719
  Serious: No
  Sender: FDA-Public Use
  Company Number: US-B.I. PHARMACEUTICALS,INC./RIDGEFIELD-2009-BP-03580BP

PATIENT
  Sex: Female

DRUGS (6)
  1. SPIRIVA [Suspect]
     Indication: CHRONIC OBSTRUCTIVE PULMONARY DISEASE
     Dosage: 18MCG
     Route: 055
     Dates: start: 20081110
  2. NEXIUM [Concomitant]
     Indication: BARRETT'S OESOPHAGUS
     Dosage: 80MG
     Route: 048
     Dates: start: 20060101
  3. PLAQUENIL [Concomitant]
     Indication: RHEUMATOID ARTHRITIS
     Dosage: 80MG
     Route: 048
     Dates: start: 20070901
  4. LASIX [Concomitant]
     Indication: HYPERTENSION
     Dosage: 160MG
     Route: 048
     Dates: start: 20070601
  5. DIOVAN [Concomitant]
     Indication: HYPERTENSION
     Dosage: 40MG
     Route: 048
     Dates: start: 20010101
  6. POTASSIUM CHLORIDE [Concomitant]
     Indication: MINERAL SUPPLEMENTATION
     Dosage: 40MEQ
     Route: 048
     Dates: start: 20070101

REACTIONS (4)
  - COUGH [None]
  - DRUG INEFFECTIVE [None]
  - DYSPNOEA [None]
  - PRODUCT QUALITY ISSUE [None]
